FAERS Safety Report 9114560 (Version 1)
Quarter: 2013Q1

REPORT INFORMATION
  Report Type: Spontaneous
  Country: US (occurrence: None)
  Receive Date: 20130220
  Receipt Date: 20130220
  Transmission Date: 20140127
  Serious: Yes (Disabling)
  Sender: FDA-Public Use
  Company Number: None

PATIENT
  Age: 47 Year
  Sex: Male
  Weight: 84.37 kg

DRUGS (1)
  1. CHANTIX [Suspect]
     Dates: start: 20120101, end: 20130207

REACTIONS (2)
  - Agitation [None]
  - Aggression [None]
